FAERS Safety Report 8952941 (Version 2)
Quarter: 2012Q4

REPORT INFORMATION
  Report Type: Report from Study
  Country: IN (occurrence: IN)
  Receive Date: 20121203
  Receipt Date: 20121211
  Transmission Date: 20130627
  Serious: Yes (Hospitalization)
  Sender: FDA-Public Use
  Company Number: IN-AMGEN-INDCT2011010294

PATIENT
  Age: 72 Year
  Sex: Female
  Weight: 48 kg

DRUGS (12)
  1. DENOSUMAB [Suspect]
     Indication: BREAST CANCER
     Dosage: 120 mg, UNK
     Dates: start: 20101207
  2. CYCLOPHOSPHAMIDE [Concomitant]
     Dosage: 840 mg, q3wk
     Dates: start: 20101207
  3. METHOTREXATE [Concomitant]
     Dosage: 56 mg, q3wk
     Dates: start: 20101207
  4. 5 FU [Concomitant]
     Dosage: 840 mg, q3wk
     Dates: start: 20101207
  5. CALCIUM [Concomitant]
     Dosage: 625 mg, qd
     Route: 048
     Dates: start: 20101207
  6. VITAMIN D [Concomitant]
     Dosage: 650 IU, qd
     Route: 048
     Dates: start: 20101207
  7. G-CSF [Concomitant]
     Dosage: 300 IU, UNK
     Route: 058
     Dates: start: 20101227, end: 20101227
  8. FERROUS SULPHATE [Concomitant]
     Dosage: 5 ml, UNK
     Route: 048
     Dates: start: 20110208, end: 20110209
  9. DEXAMETHASONE [Concomitant]
     Dosage: 8 mg, UNK
     Route: 042
     Dates: start: 20101207
  10. VITAMIN B1 WITH VITAMIN C [Concomitant]
     Dosage: 5 ml, UNK
     Route: 048
     Dates: start: 20110208, end: 20110209
  11. ONDANSETRON [Concomitant]
     Dosage: 8 mg, UNK
     Dates: start: 20101207
  12. RANITIDINE [Concomitant]
     Dosage: 150 mg, UNK
     Route: 048
     Dates: start: 20101208

REACTIONS (1)
  - Deep vein thrombosis [Recovered/Resolved]
